FAERS Safety Report 15543129 (Version 1)
Quarter: 2018Q4

REPORT INFORMATION
  Report Type: Report from Study
  Country: None (occurrence: US)
  Receive Date: 20181023
  Receipt Date: 20181023
  Transmission Date: 20190205
  Serious: Yes (Hospitalization, Other)
  Sender: FDA-Public Use
  Company Number: US-ABBVIE-18K-163-2462186-00

PATIENT
  Age: 78 Year
  Sex: Female
  Weight: 53.12 kg

DRUGS (6)
  1. METOPROLOL. [Concomitant]
     Active Substance: METOPROLOL
     Indication: BLOOD PRESSURE MEASUREMENT
  2. HUMIRA [Suspect]
     Active Substance: ADALIMUMAB
     Indication: CROHN^S DISEASE
     Route: 058
  3. HUMIRA [Suspect]
     Active Substance: ADALIMUMAB
     Route: 058
  4. MACROBID [Concomitant]
     Active Substance: NITROFURANTOIN\NITROFURANTOIN MONOHYDRATE
     Indication: PRODUCT USED FOR UNKNOWN INDICATION
     Route: 065
  5. ZOSYN [Concomitant]
     Active Substance: PIPERACILLIN SODIUM\TAZOBACTAM SODIUM
     Indication: PRODUCT USED FOR UNKNOWN INDICATION
  6. HUMIRA [Suspect]
     Active Substance: ADALIMUMAB
     Route: 058

REACTIONS (20)
  - Kidney infection [Recovering/Resolving]
  - Hypertension [Unknown]
  - Injection site papule [Unknown]
  - Malignant blue naevus [Unknown]
  - Injection site warmth [Unknown]
  - Pain [Unknown]
  - Carotid artery stenosis [Unknown]
  - Diabetes mellitus inadequate control [Unknown]
  - Transient ischaemic attack [Unknown]
  - Nervous system disorder [Unknown]
  - Drug hypersensitivity [Unknown]
  - Abdominal distension [Not Recovered/Not Resolved]
  - Injection site urticaria [Unknown]
  - Escherichia urinary tract infection [Unknown]
  - Blood pressure inadequately controlled [Unknown]
  - Vertigo [Unknown]
  - Insomnia [Unknown]
  - Type 2 diabetes mellitus [Unknown]
  - Presyncope [Recovered/Resolved]
  - Fatigue [Recovered/Resolved]
